FAERS Safety Report 13622486 (Version 2)
Quarter: 2018Q2

REPORT INFORMATION
  Report Type: Spontaneous
  Country: US (occurrence: US)
  Receive Date: 20170607
  Receipt Date: 20180625
  Transmission Date: 20180711
  Serious: Yes (Other)
  Sender: FDA-Public Use
  Company Number: US-ROCHE-1898487

PATIENT
  Age: 59 Year
  Sex: Male

DRUGS (1)
  1. XELODA [Suspect]
     Active Substance: CAPECITABINE
     Indication: COLON CANCER
     Dosage: 3 TABS TWICE DAY FOR 2 WEEKS THEN 1 WEEK OFF
     Route: 048
     Dates: start: 20170223

REACTIONS (6)
  - Temperature intolerance [Unknown]
  - Hypoaesthesia [Unknown]
  - Skin exfoliation [Unknown]
  - Skin discolouration [Unknown]
  - Penile discharge [Unknown]
  - Dry skin [Unknown]

NARRATIVE: CASE EVENT DATE: 20170331
